FAERS Safety Report 24189889 (Version 2)
Quarter: 2024Q3

REPORT INFORMATION
  Report Type: Spontaneous
  Country: JP (occurrence: JP)
  Receive Date: 20240808
  Receipt Date: 20240829
  Transmission Date: 20241017
  Serious: Yes (Other)
  Sender: BAYER
  Company Number: JP-BAYER-2024A110275

PATIENT
  Age: 25 Year
  Sex: Female

DRUGS (2)
  1. YAZ [Suspect]
     Active Substance: DROSPIRENONE\ETHINYL ESTRADIOL
     Indication: Dysmenorrhoea
     Dosage: UNK
     Route: 048
     Dates: start: 20170421, end: 20221213
  2. YAZ [Suspect]
     Active Substance: DROSPIRENONE\ETHINYL ESTRADIOL
     Indication: Dysmenorrhoea
     Dosage: UNK
     Route: 048
     Dates: start: 20221214, end: 20240401

REACTIONS (7)
  - Suspected drug-induced liver injury [Recovering/Resolving]
  - Gamma-glutamyltransferase increased [Recovering/Resolving]
  - Hepatic function abnormal [Recovering/Resolving]
  - Non-alcoholic fatty liver [Recovered/Resolved]
  - Dyslipidaemia [Recovering/Resolving]
  - Adenomyosis [Not Recovered/Not Resolved]
  - Intermenstrual bleeding [None]

NARRATIVE: CASE EVENT DATE: 20190716
